FAERS Safety Report 14790121 (Version 1)
Quarter: 2018Q2

REPORT INFORMATION
  Report Type: Spontaneous
  Country: FR (occurrence: FR)
  Receive Date: 20180423
  Receipt Date: 20180423
  Transmission Date: 20180711
  Serious: Yes (Other)
  Sender: FDA-Public Use
  Company Number: FR-MERCK KGAA-2046268

PATIENT
  Age: 76 Year
  Sex: Female

DRUGS (1)
  1. NOVOTHYROX [Suspect]
     Active Substance: LEVOTHYROXINE SODIUM
     Indication: PRODUCT USED FOR UNKNOWN INDICATION

REACTIONS (23)
  - Psychiatric symptom [Recovered/Resolved]
  - Negative thoughts [Recovered/Resolved]
  - Mobility decreased [Recovered/Resolved]
  - Somnolence [Recovered/Resolved]
  - Neutrophil count increased [None]
  - Depressed mood [Recovered/Resolved]
  - Fatigue [Recovered/Resolved]
  - Blood creatinine increased [Recovering/Resolving]
  - Alopecia [Recovered/Resolved]
  - Loss of consciousness [Recovered/Resolved]
  - Blood calcium increased [Recovering/Resolving]
  - Glycosylated haemoglobin increased [Not Recovered/Not Resolved]
  - Depression [Recovered/Resolved]
  - Fear [Recovered/Resolved]
  - White blood cell count increased [None]
  - Myalgia [Recovered/Resolved]
  - Sleep disorder [Recovered/Resolved]
  - Blood parathyroid hormone increased [Recovering/Resolving]
  - Headache [Recovered/Resolved]
  - Blood thyroid stimulating hormone increased [Recovered/Resolved]
  - Monocyte count increased [None]
  - Blood glucose increased [None]
  - Glomerular filtration rate decreased [Recovering/Resolving]

NARRATIVE: CASE EVENT DATE: 20170202
